FAERS Safety Report 4928305-6 (Version None)
Quarter: 2006Q1

REPORT INFORMATION
  Report Type: 
  Country: None (occurrence: None)
  Receive Date: 20060223
  Receipt Date: 20060201
  Transmission Date: 20060701
  Serious: Yes (Other)
  Sender: FDA-Public Use
  Company Number: US200602000394

PATIENT
  Sex: Female

DRUGS (1)
  1. ZYPREXA [Suspect]
     Indication: BIPOLAR DISORDER
     Dosage: ORAL
     Route: 048

REACTIONS (6)
  - BLADDER CANCER [None]
  - BLOOD PROLACTIN INCREASED [None]
  - BLOOD URINE PRESENT [None]
  - BREAST CANCER FEMALE [None]
  - MEMORY IMPAIRMENT [None]
  - RENAL DISORDER [None]
